FAERS Safety Report 17651129 (Version 1)
Quarter: 2020Q2

REPORT INFORMATION
  Report Type: Spontaneous
  Country: US (occurrence: US)
  Receive Date: 20200409
  Receipt Date: 20200409
  Transmission Date: 20200713
  Serious: Yes (Hospitalization)
  Sender: FDA-Public Use
  Company Number: None

PATIENT
  Age: 58 Year
  Sex: Male
  Weight: 81.65 kg

DRUGS (2)
  1. CARBOPLATIN (CARBOPLATIN 150MG/VIL INJ [Suspect]
     Active Substance: CARBOPLATIN
     Indication: LUNG SQUAMOUS CELL CARCINOMA STAGE III
     Dosage: ?          OTHER STRENGTH:150 MG/VIL;?
     Route: 042
     Dates: start: 20181227
  2. PACLITAXEL (PACLITAXEL 300MG/50MG INJ, VIL, 50ML [Suspect]
     Active Substance: PACLITAXEL
     Indication: LUNG SQUAMOUS CELL CARCINOMA STAGE III
     Route: 042
     Dates: start: 20181227

REACTIONS (6)
  - Immunodeficiency [None]
  - Abdominal pain [None]
  - Diarrhoea haemorrhagic [None]
  - Thrombocytopenia [None]
  - Enterocolitis haemorrhagic [None]
  - Septic shock [None]

NARRATIVE: CASE EVENT DATE: 20190227
